FAERS Safety Report 21694441 (Version 1)
Quarter: 2022Q4

REPORT INFORMATION
  Report Type: Spontaneous
  Country: US (occurrence: US)
  Receive Date: 20221207
  Receipt Date: 20221207
  Transmission Date: 20230112
  Serious: Yes (Other)
  Sender: FDA-Public Use
  Company Number: US-NOVOPROD-926609

PATIENT
  Age: 72 Year
  Sex: Female

DRUGS (2)
  1. NOVOLIN N [Suspect]
     Active Substance: INSULIN HUMAN
     Dosage: 60 IU, QD (50 UNITS/AM AND 10 UNITS PM)
     Route: 058
  2. NOVOLIN N [Suspect]
     Active Substance: INSULIN HUMAN
     Indication: Type 1 diabetes mellitus
     Dosage: 60 IU, QD (50 UNITS/AM AND 10 UNITS PM)
     Route: 058

REACTIONS (5)
  - Hypoglycaemic unconsciousness [Recovered/Resolved]
  - Blood glucose decreased [Recovered/Resolved]
  - Product quality issue [Unknown]
  - Blood glucose decreased [Unknown]
  - Product use complaint [Unknown]

NARRATIVE: CASE EVENT DATE: 20220101
